FAERS Safety Report 19133764 (Version 2)
Quarter: 2021Q4

REPORT INFORMATION
  Report Type: Spontaneous
  Country: GB (occurrence: GB)
  Receive Date: 20210414
  Receipt Date: 20211019
  Transmission Date: 20220303
  Serious: Yes (Life-Threatening)
  Sender: FDA-Public Use
  Company Number: GB-PFIZER INC-2021355450

PATIENT
  Age: 6 Week
  Sex: Male

DRUGS (3)
  1. DOPAMINE HYDROCHLORIDE [Suspect]
     Active Substance: DOPAMINE HYDROCHLORIDE
     Indication: Hypoxia
     Dosage: 10 MG/KG/MIN
  2. PROSTAGLANDIN E1 [Suspect]
     Active Substance: ALPROSTADIL
     Indication: Hypoxia
     Dosage: 100 NG/KG/MIN
  3. OXYGEN [Concomitant]
     Active Substance: OXYGEN
     Indication: Hypoxia
     Dosage: UNK

REACTIONS (2)
  - Off label use [Unknown]
  - Drug ineffective for unapproved indication [Unknown]
